FAERS Safety Report 12774467 (Version 1)
Quarter: 2016Q3

REPORT INFORMATION
  Report Type: Spontaneous
  Country: US (occurrence: US)
  Receive Date: 20160923
  Receipt Date: 20160923
  Transmission Date: 20161109
  Serious: No
  Sender: FDA-Public Use
  Company Number: US-PFIZER INC-2016409799

PATIENT
  Age: 71 Year
  Sex: Female

DRUGS (1)
  1. ESTRING [Suspect]
     Active Substance: ESTRADIOL
     Indication: CARDIAC DISORDER
     Dosage: 2 MG, UNK

REACTIONS (3)
  - Fatigue [Unknown]
  - Heart rate increased [Unknown]
  - Product use issue [Unknown]
